FAERS Safety Report 12291098 (Version 1)
Quarter: 2016Q2

REPORT INFORMATION
  Report Type: Spontaneous
  Country: US (occurrence: US)
  Receive Date: 20160421
  Receipt Date: 20160421
  Transmission Date: 20160815
  Serious: Yes (Life-Threatening, Hospitalization, Disabling)
  Sender: FDA-Public Use
  Company Number: US-JNJFOC-20160419515

PATIENT
  Age: 60 Year
  Sex: Male
  Weight: 106 kg

DRUGS (14)
  1. VITAMINS NOS [Concomitant]
     Active Substance: VITAMINS
  2. MORPHINE SULFATE. [Concomitant]
     Active Substance: MORPHINE SULFATE
  3. LEVOTHYROXINE. [Concomitant]
     Active Substance: LEVOTHYROXINE
     Dosage: 75 MCG
  4. FERROUS SULFATE. [Concomitant]
     Active Substance: FERROUS SULFATE
  5. SERTRALINE HCL [Concomitant]
     Active Substance: SERTRALINE HYDROCHLORIDE
  6. HYDROMORPHONE [Concomitant]
     Active Substance: HYDROMORPHONE
     Dosage: 2 UNK, UNK
  7. ATENOLOL. [Concomitant]
     Active Substance: ATENOLOL
  8. IMBRUVICA [Suspect]
     Active Substance: IBRUTINIB
     Indication: CHRONIC LYMPHOCYTIC LEUKAEMIA
     Route: 048
     Dates: start: 20140712, end: 20140812
  9. RANITIDINE. [Concomitant]
     Active Substance: RANITIDINE
  10. CALCIUM [Concomitant]
     Active Substance: CALCIUM
  11. ACYCLOVIR. [Concomitant]
     Active Substance: ACYCLOVIR
  12. ALLOPURINOL. [Concomitant]
     Active Substance: ALLOPURINOL
  13. MAGNESIUM [Concomitant]
     Active Substance: MAGNESIUM
  14. VITAMIN D [Concomitant]
     Active Substance: CHOLECALCIFEROL

REACTIONS (8)
  - Fall [Unknown]
  - Skin lesion [Recovered/Resolved]
  - Blood viscosity decreased [Unknown]
  - Dizziness [Unknown]
  - Contusion [Unknown]
  - Balance disorder [Unknown]
  - Gingival recession [Unknown]
  - Subdural haematoma [Unknown]

NARRATIVE: CASE EVENT DATE: 2014
